FAERS Safety Report 8781753 (Version 1)
Quarter: 2012Q4

REPORT INFORMATION
  Report Type: 
  Country: US (occurrence: US)
  Receive Date: 20120913
  Receipt Date: 20120913
  Transmission Date: 20130627
  Serious: No
  Sender: FDA-Public Use
  Company Number: US-VERTEX PHARMACEUTICAL INC.-AE-2012-006787

PATIENT

DRUGS (7)
  1. INCIVEK [Suspect]
     Indication: HEPATITIS C
     Route: 048
     Dates: start: 20120330
  2. PEGASYS [Concomitant]
     Indication: HEPATITIS C
     Route: 058
     Dates: start: 20120330
  3. RIBAPAK [Concomitant]
     Indication: HEPATITIS C
     Route: 048
     Dates: start: 20120330
  4. LISINOPRIL [Concomitant]
  5. MILK THISTLE [Concomitant]
  6. OMEPRAZOLE [Concomitant]
  7. VITAMIN D [Concomitant]

REACTIONS (2)
  - Neutropenia [Recovered/Resolved]
  - Malaise [Unknown]
